FAERS Safety Report 9931543 (Version 1)
Quarter: 2014Q1

REPORT INFORMATION
  Report Type: Spontaneous
  Country: US (occurrence: None)
  Receive Date: 20140227
  Receipt Date: 20140227
  Transmission Date: 20141002
  Serious: Yes (Death)
  Sender: FDA-Public Use
  Company Number: None

PATIENT
  Age: 73 Year
  Sex: Male

DRUGS (15)
  1. LETAIRIS 10MG GILEAD [Suspect]
     Indication: PULMONARY HYPERTENSION
     Route: 048
     Dates: start: 201307, end: 201401
  2. ISORDIL [Concomitant]
  3. LIPITOR [Concomitant]
  4. MIRTAZAPINE [Concomitant]
  5. VENLAFAXINE [Concomitant]
  6. METOLAZONE [Concomitant]
  7. SOTALOL [Concomitant]
  8. COZAAR [Concomitant]
  9. GLIPIZIDE [Concomitant]
  10. BACLOFEN [Concomitant]
  11. HYDRALAZINE [Concomitant]
  12. ZOLPIDEM [Concomitant]
  13. WARFARIN [Concomitant]
  14. LASIX [Concomitant]
  15. K-TAB [Concomitant]

REACTIONS (4)
  - Atrial fibrillation [None]
  - Dyspnoea [None]
  - Heart rate increased [None]
  - Treatment noncompliance [None]
